FAERS Safety Report 23587771 (Version 2)
Quarter: 2024Q2

REPORT INFORMATION
  Report Type: Spontaneous
  Country: US (occurrence: US)
  Receive Date: 20240301
  Receipt Date: 20240519
  Transmission Date: 20240716
  Serious: No
  Sender: FDA-Public Use
  Company Number: US-SA-SAC20240227000813

PATIENT
  Age: 72 Year
  Sex: Male

DRUGS (3)
  1. DUPIXENT [Suspect]
     Active Substance: DUPILUMAB
     Indication: Dermatitis atopic
     Dosage: 300 MG, QOW
     Route: 058
     Dates: start: 202303
  2. CLOBETASOL [Concomitant]
     Active Substance: CLOBETASOL
     Route: 061
  3. HYALURONIC ACID [Concomitant]
     Active Substance: HYALURONIC ACID

REACTIONS (3)
  - Injection site pain [Unknown]
  - Incorrect dose administered [Unknown]
  - Pruritus [Unknown]
